FAERS Safety Report 22203256 (Version 1)
Quarter: 2023Q2

REPORT INFORMATION
  Report Type: Spontaneous
  Country: US (occurrence: None)
  Receive Date: 20230412
  Receipt Date: 20230412
  Transmission Date: 20230722
  Serious: Yes (Other)
  Sender: FDA-Public Use
  Company Number: None

PATIENT
  Age: 40 Year
  Sex: Female
  Weight: 83.25 kg

DRUGS (4)
  1. CYCLOSPORINE [Suspect]
     Active Substance: CYCLOSPORINE
     Indication: Prophylaxis against transplant rejection
     Dosage: FREQUENCY : TWICE A DAY;?
     Route: 048
     Dates: start: 20230315, end: 20230322
  2. ATOVAQUONE [Concomitant]
     Active Substance: ATOVAQUONE
     Dates: start: 20221014
  3. PREDNISONE [Concomitant]
     Active Substance: PREDNISONE
     Dates: start: 20221014
  4. MYCOPHENOLIC ACID [Concomitant]
     Active Substance: MYCOPHENOLIC ACID
     Dates: start: 20221014

REACTIONS (2)
  - Swelling [None]
  - Therapy interrupted [None]

NARRATIVE: CASE EVENT DATE: 20230322
